FAERS Safety Report 8781556 (Version 1)
Quarter: 2012Q4

REPORT INFORMATION
  Report Type: 
  Country: US (occurrence: US)
  Receive Date: 20120913
  Receipt Date: 20120913
  Transmission Date: 20130627
  Serious: No
  Sender: FDA-Public Use
  Company Number: US-VERTEX PHARMACEUTICAL INC.-AE-2012-007898

PATIENT
  Sex: Male
  Weight: 115.91 kg

DRUGS (3)
  1. INCIVEK [Suspect]
     Indication: HEPATITIS C
     Route: 048
  2. PEGASYS [Concomitant]
     Indication: HEPATITIS C
     Route: 058
     Dates: start: 20120508
  3. RIBASPHERE [Concomitant]
     Indication: HEPATITIS C
     Dates: start: 20120508

REACTIONS (2)
  - Pain [Unknown]
  - Blister [Unknown]
